FAERS Safety Report 9714565 (Version 2)
Quarter: 2014Q1

REPORT INFORMATION
  Report Type: Spontaneous
  Country: US (occurrence: US)
  Receive Date: 20131126
  Receipt Date: 20140116
  Transmission Date: 20141002
  Serious: No
  Sender: FDA-Public Use
  Company Number: US-GILEAD-2013-0088614

PATIENT
  Sex: Female

DRUGS (4)
  1. LETAIRIS [Suspect]
     Indication: PULMONARY HYPERTENSION
     Dosage: 10 MG, QD
     Route: 048
     Dates: start: 2012
  2. LETAIRIS [Suspect]
     Indication: ATRIAL SEPTAL DEFECT
  3. SILDENAFIL [Concomitant]
  4. TYVASO [Concomitant]

REACTIONS (1)
  - Headache [Unknown]
